FAERS Safety Report 17326737 (Version 1)
Quarter: 2020Q1

REPORT INFORMATION
  Report Type: Spontaneous
  Country: US (occurrence: US)
  Receive Date: 20200127
  Receipt Date: 20200127
  Transmission Date: 20200409
  Serious: Yes (Other)
  Sender: FDA-Public Use
  Company Number: US-ABBVIE-19S-163-2667048-00

PATIENT
  Sex: Male

DRUGS (5)
  1. CASODEX [Concomitant]
     Active Substance: BICALUTAMIDE
     Indication: PROSTATE CANCER
     Dosage: FROM 2016 SPRING
     Dates: start: 2016
  2. ZYTIGA [Concomitant]
     Active Substance: ABIRATERONE ACETATE
     Indication: PROSTATE CANCER
     Dosage: FROM 2016 SPRING
     Dates: start: 2016
  3. TAXOTERE [Concomitant]
     Active Substance: DOCETAXEL
     Indication: PROSTATE CANCER
     Dosage: FROM 2016 SPRING
     Dates: start: 2016
  4. LUPRON [Suspect]
     Active Substance: LEUPROLIDE ACETATE
     Indication: PROSTATE CANCER
     Dosage: FROM 2016 SPRING
     Route: 050
     Dates: start: 2016
  5. TORISEL [Suspect]
     Active Substance: TEMSIROLIMUS
     Indication: PROSTATE CANCER
     Dosage: 4 VIALS,C61, FROM 2016 SPRING
     Route: 065
     Dates: start: 2016

REACTIONS (1)
  - Prostate cancer [Unknown]

NARRATIVE: CASE EVENT DATE: 201803
